FAERS Safety Report 19493318 (Version 1)
Quarter: 2021Q3

REPORT INFORMATION
  Report Type: Report from Study
  Country: US (occurrence: US)
  Receive Date: 20210705
  Receipt Date: 20210705
  Transmission Date: 20211014
  Serious: Yes (Hospitalization, Other)
  Sender: FDA-Public Use
  Company Number: US-B.I. PHARMACEUTICALS,INC./RIDGEFIELD-2020-BI-069202

PATIENT
  Age: 80 Year
  Sex: Male

DRUGS (1)
  1. OFEV [Suspect]
     Active Substance: NINTEDANIB
     Indication: INTERSTITIAL LUNG DISEASE
     Dosage: 100 MG BI
     Route: 048
     Dates: start: 20201204

REACTIONS (5)
  - Lung disorder [Unknown]
  - Fall [Unknown]
  - Diarrhoea [Recovered/Resolved]
  - Terminal state [Unknown]
  - Gait inability [Not Recovered/Not Resolved]
